FAERS Safety Report 8788796 (Version 4)
Quarter: 2013Q2

REPORT INFORMATION
  Report Type: Report from Study
  Country: JP (occurrence: JP)
  Receive Date: 20120916
  Receipt Date: 20130422
  Transmission Date: 20140414
  Serious: Yes (Hospitalization, Other)
  Sender: FDA-Public Use
  Company Number: JP-009507513-1208JPN009149

PATIENT
  Age: 69 Year
  Sex: Male
  Weight: 54 kg

DRUGS (16)
  1. PEGINTRON [Suspect]
     Indication: CHRONIC HEPATITIS C
     Dosage: 1.5 MICROGRAM PER KILOGRAM, QW
     Route: 058
     Dates: start: 20120611, end: 20120711
  2. PEGINTRON [Suspect]
     Dosage: 1.0 MICROGRAM PER KILOGRAM, QW
     Route: 058
     Dates: start: 20120712, end: 20121127
  3. REBETOL [Suspect]
     Indication: CHRONIC HEPATITIS C
     Dosage: 800 MG, QD
     Route: 048
     Dates: start: 20120611, end: 20120717
  4. REBETOL [Suspect]
     Dosage: 600 MG, QD
     Route: 048
     Dates: start: 20120718, end: 20120801
  5. REBETOL [Suspect]
     Dosage: 400 MG, QD
     Route: 048
     Dates: start: 20120802, end: 20120815
  6. REBETOL [Suspect]
     Dosage: 200 MG, QD
     Route: 048
     Dates: start: 20120816, end: 20120911
  7. REBETOL [Suspect]
     Dosage: 400 MG, QD
     Route: 048
     Dates: start: 20120912, end: 20121127
  8. TELAVIC [Suspect]
     Indication: CHRONIC HEPATITIS C
     Dosage: 1500 MG, QD
     Route: 048
     Dates: start: 20120611, end: 20120905
  9. PREDONINE [Suspect]
     Indication: ADVERSE EVENT
     Dosage: 25 MG, QD, FORMULATION: POR
     Route: 048
     Dates: start: 20120615, end: 20120624
  10. PREDONINE [Suspect]
     Dosage: 15 MG, QD, FORMULATION: POR
     Route: 048
     Dates: start: 20120625, end: 20120701
  11. PREDONINE [Suspect]
     Dosage: 10 MG, QD, FORMULATION: POR
     Route: 048
     Dates: start: 20120702, end: 20120717
  12. PREDONINE [Suspect]
     Dosage: 5 MG, QD, FORMULATION: POR
     Route: 048
     Dates: start: 20120718
  13. PREDONINE [Suspect]
     Dosage: 10 MG, QD, FORMULATION: POR
     Route: 048
     Dates: start: 20120911, end: 20120915
  14. PREDONINE [Suspect]
     Dosage: 5 MG, QD, FORMULATION: POR
     Route: 048
     Dates: start: 20120916, end: 20120919
  15. PREDONINE [Suspect]
     Dosage: 2.5 MG, QD; FORMULATION: POR
     Route: 048
     Dates: start: 20120920, end: 20120925
  16. JUZEN-TAIHO-TO [Concomitant]
     Indication: PROPHYLAXIS
     Dosage: 7.5 G, QD, FORMULATION: POR
     Route: 048
     Dates: start: 20120611

REACTIONS (3)
  - Erythema [Recovered/Resolved]
  - Neutrophil count decreased [Recovering/Resolving]
  - Malaise [Recovering/Resolving]
